FAERS Safety Report 14150576 (Version 1)
Quarter: 2017Q4

REPORT INFORMATION
  Report Type: Spontaneous
  Country: RU (occurrence: RU)
  Receive Date: 20171101
  Receipt Date: 20171101
  Transmission Date: 20180321
  Serious: Yes (Hospitalization, Other)
  Sender: FDA-Public Use
  Company Number: RU-ASTRAZENECA-2017SF10444

PATIENT
  Age: 65 Year
  Sex: Female
  Weight: 95 kg

DRUGS (10)
  1. METFORMIN [Concomitant]
     Active Substance: METFORMIN HYDROCHLORIDE
  2. ROSUVASTATIN. [Concomitant]
     Active Substance: ROSUVASTATIN
  3. BRILINTA [Suspect]
     Active Substance: TICAGRELOR
     Indication: ANGINA UNSTABLE
     Route: 048
  4. AMLODIPIN [Concomitant]
     Active Substance: AMLODIPINE BESYLATE
  5. OMEGA-3 ACIDS [Concomitant]
     Active Substance: OMEGA-3 FATTY ACIDS
  6. CARDIOMAGNYL [Concomitant]
     Active Substance: ASPIRIN\MAGNESIUM HYDROXIDE
  7. CONCOR [Concomitant]
     Active Substance: BISOPROLOL FUMARATE
  8. VEROSPIRON [Concomitant]
     Active Substance: SPIRONOLACTONE
  9. LOSAP [Concomitant]
  10. INDAPAMIDE. [Concomitant]
     Active Substance: INDAPAMIDE

REACTIONS (8)
  - Contusion [Not Recovered/Not Resolved]
  - Coronary artery disease [Recovered/Resolved]
  - Fatigue [Not Recovered/Not Resolved]
  - Injection site haemorrhage [Unknown]
  - Bradycardia [Recovered/Resolved]
  - Hypotension [Unknown]
  - Aortic arteriosclerosis [Unknown]
  - Dyspnoea [Not Recovered/Not Resolved]

NARRATIVE: CASE EVENT DATE: 2017
